FAERS Safety Report 23904532 (Version 1)
Quarter: 2024Q2

REPORT INFORMATION
  Report Type: Spontaneous
  Country: US (occurrence: US)
  Receive Date: 20240527
  Receipt Date: 20240527
  Transmission Date: 20240716
  Serious: No
  Sender: FDA-Public Use
  Company Number: US-002147023-PHEH2011US04009

PATIENT
  Sex: Female

DRUGS (1)
  1. VIVELLE-DOT [Suspect]
     Active Substance: ESTRADIOL
     Indication: Product used for unknown indication
     Dosage: UNK UKN, UNK
     Route: 065

REACTIONS (3)
  - Drug ineffective [Unknown]
  - Product dose omission issue [Unknown]
  - Product availability issue [Unknown]
